FAERS Safety Report 7230827-2 (Version None)
Quarter: 2011Q1

REPORT INFORMATION
  Report Type: 
  Country: None (occurrence: None)
  Receive Date: 20110118
  Receipt Date: 20110113
  Transmission Date: 20110831
  Serious: Yes (Other)
  Sender: FDA-Public Use
  Company Number: JP-SANOFI-AVENTIS-2011SA002670

PATIENT
  Sex: Female

DRUGS (5)
  1. LASIX [Suspect]
     Route: 042
  2. ALL OTHER THERAPEUTIC PRODUCTS [Concomitant]
  3. LASIX [Suspect]
     Route: 048
  4. LASIX [Suspect]
     Route: 042
  5. LASIX [Suspect]
     Route: 048

REACTIONS (1)
  - PANCYTOPENIA [None]
